FAERS Safety Report 7669891-5 (Version None)
Quarter: 2011Q3

REPORT INFORMATION
  Report Type: 
  Country: None (occurrence: None)
  Receive Date: 20110808
  Receipt Date: 20110728
  Transmission Date: 20111222
  Serious: Yes (Hospitalization)
  Sender: FDA-Public Use
  Company Number: PHHY2011US69196

PATIENT
  Sex: Female
  Weight: 60.771 kg

DRUGS (1)
  1. GILENYA [Suspect]
     Indication: MULTIPLE SCLEROSIS
     Dosage: 0.5 MG/DAILY
     Route: 048
     Dates: start: 20110125, end: 20110710

REACTIONS (3)
  - LIVER FUNCTION TEST ABNORMAL [None]
  - URINARY TRACT INFECTION [None]
  - CONVULSION [None]
